FAERS Safety Report 7306408-9 (Version None)
Quarter: 2011Q1

REPORT INFORMATION
  Report Type: 
  Country: None (occurrence: None)
  Receive Date: 20110222
  Receipt Date: 20110111
  Transmission Date: 20110831
  Serious: Yes (Death, Hospitalization, Other)
  Sender: FDA-Public Use
  Company Number: US-BAXTER-2008BH000814

PATIENT
  Age: 41 Year
  Sex: Male
  Weight: 63 kg

DRUGS (22)
  1. HEPARIN SODIUM INJECTION [Suspect]
     Indication: PROPHYLAXIS
     Route: 033
     Dates: start: 20080116
  2. CLONIDINE [Concomitant]
     Indication: HYPERTENSION
     Route: 048
     Dates: start: 19970101
  3. ASA [Concomitant]
     Indication: PRODUCT USED FOR UNKNOWN INDICATION
     Route: 065
  4. HEPARIN SODIUM INJECTION [Suspect]
     Route: 042
     Dates: start: 20080120, end: 20080122
  5. NEPHROCAPS [Concomitant]
     Indication: RENAL FAILURE
     Route: 048
     Dates: start: 19970101
  6. IRON [Concomitant]
     Indication: PRODUCT USED FOR UNKNOWN INDICATION
     Route: 065
  7. FLUCONAZOLE [Concomitant]
     Indication: NAUSEA
     Route: 048
     Dates: start: 20080120, end: 20080128
  8. HEPARIN SODIUM INJECTION [Suspect]
     Route: 042
     Dates: start: 20080120, end: 20080122
  9. CLONIDINE [Concomitant]
     Indication: PRODUCT USED FOR UNKNOWN INDICATION
     Route: 065
  10. ANTIBIOTICS [Concomitant]
     Indication: PRODUCT USED FOR UNKNOWN INDICATION
     Route: 065
  11. CORTICOSTEROIDS [Concomitant]
     Indication: PRODUCT USED FOR UNKNOWN INDICATION
     Route: 065
  12. HEPARIN SODIUM INJECTION [Suspect]
     Route: 033
     Dates: start: 20080115, end: 20080115
  13. QUINAPRIL [Concomitant]
     Indication: PRODUCT USED FOR UNKNOWN INDICATION
     Route: 065
  14. MORPHINE [Concomitant]
     Indication: PRODUCT USED FOR UNKNOWN INDICATION
     Route: 065
  15. PHOSLO [Concomitant]
     Indication: PRODUCT USED FOR UNKNOWN INDICATION
     Route: 065
  16. HEPARIN SODIUM INJECTION [Suspect]
     Indication: PERITONEAL DIALYSIS
     Route: 033
     Dates: start: 20080116
  17. PROTONIX [Concomitant]
     Indication: GASTRIC DISORDER
     Route: 048
     Dates: start: 20080120, end: 20080128
  18. K-DUR [Concomitant]
     Indication: MINERAL SUPPLEMENTATION
     Dosage: DOSE UNIT:UNKNOWN
     Route: 048
     Dates: start: 19970101
  19. PROMETHAZINE [Concomitant]
     Indication: NAUSEA
     Route: 048
     Dates: start: 20080120
  20. LORTAB [Concomitant]
     Indication: PRODUCT USED FOR UNKNOWN INDICATION
     Route: 065
  21. HEPARIN SODIUM INJECTION [Suspect]
     Route: 033
     Dates: start: 20080115, end: 20080115
  22. ZOFRAN [Concomitant]
     Indication: PRODUCT USED FOR UNKNOWN INDICATION
     Route: 065

REACTIONS (15)
  - ABDOMINAL PAIN [None]
  - SYNCOPE [None]
  - VOMITING [None]
  - SEPSIS [None]
  - RENAL FAILURE CHRONIC [None]
  - DYSPNOEA [None]
  - HYPOGLYCAEMIA [None]
  - ABDOMINAL CAVITY DRAINAGE [None]
  - NAUSEA [None]
  - BLOOD PRESSURE INCREASED [None]
  - DYSPEPSIA [None]
  - INTESTINAL PERFORATION [None]
  - HYPOALBUMINAEMIA [None]
  - MALNUTRITION [None]
  - ANAEMIA [None]
